FAERS Safety Report 8578924-3 (Version None)
Quarter: 2012Q2

REPORT INFORMATION
  Report Type: 
  Country: None (occurrence: None)
  Receive Date: 20120423
  Receipt Date: 20100920
  Transmission Date: 20120825
  Serious: Yes (Other)
  Sender: FDA-Public Use
  Company Number: PHHY2010US31018

PATIENT
  Age: 65 Year
  Sex: Male
  Weight: 112 kg

DRUGS (7)
  1. EXJADE [Suspect]
     Indication: APLASTIC ANAEMIA
     Dosage: 2000 MG DAILY (QPM),ORAL
     Route: 048
     Dates: start: 20100416
  2. PREDNISONE TAB [Concomitant]
  3. PROMETHAZINE [Concomitant]
  4. ZOFRAN [Concomitant]
  5. FLOMAX (TAMSULOSIN HDROCHLORIDE) [Concomitant]
  6. SENNOSIDES-DOCUSATE (DOCUSATE SODIUM, SENNA, SENNA ALEXANDRINA) [Concomitant]
  7. LISINOPRIL [Concomitant]

REACTIONS (5)
  - NAUSEA [None]
  - FUNGAL SKIN INFECTION [None]
  - DIARRHOEA [None]
  - RENAL DISORDER [None]
  - RASH [None]
